FAERS Safety Report 8790317 (Version 3)
Quarter: 2013Q2

REPORT INFORMATION
  Report Type: Spontaneous
  Country: US (occurrence: US)
  Receive Date: 20120917
  Receipt Date: 20130503
  Transmission Date: 20140414
  Serious: Yes (Hospitalization)
  Sender: FDA-Public Use
  Company Number: US-VIROPHARMA INCORPORATED-20120907CINRY3338

PATIENT
  Age: 34 Year
  Sex: Female
  Weight: 60.38 kg

DRUGS (8)
  1. CINRYZE (C1 ESTERASE INHIBITOR (HUMAN)) [Suspect]
     Indication: HEREDITARY ANGIOEDEMA
     Dates: end: 201209
  2. CINRYZE (C1 ESTERASE INHIBITOR (HUMAN)) [Suspect]
     Indication: PROPHYLAXIS
     Dates: start: 201209
  3. OCTAGAM [Suspect]
     Indication: IMMUNODEFICIENCY COMMON VARIABLE
     Dosage: UNKNOWN
     Dates: end: 201209
  4. OCTAGAM [Suspect]
     Dates: start: 201209
  5. BERINERT [Concomitant]
     Indication: HEREDITARY ANGIOEDEMA
     Dosage: UNKNOWN
  6. DILAUDID [Concomitant]
     Indication: FIBROMYALGIA
     Route: 065
  7. DILAUDID [Concomitant]
     Indication: PAIN
  8. PHENERGAN [Concomitant]
     Indication: NAUSEA
     Dosage: UNKNOWN
     Route: 065

REACTIONS (1)
  - Deep vein thrombosis [Recovered/Resolved]
